FAERS Safety Report 13886185 (Version 1)
Quarter: 2017Q3

REPORT INFORMATION
  Report Type: Spontaneous
  Country: KR (occurrence: KR)
  Receive Date: 20170821
  Receipt Date: 20170821
  Transmission Date: 20171127
  Serious: Yes (Other)
  Sender: FDA-Public Use
  Company Number: KR-PFIZER INC-3251457

PATIENT
  Age: 72 Year
  Sex: Male

DRUGS (4)
  1. GEMCITABINE HYDROCHLORIDE. [Suspect]
     Active Substance: GEMCITABINE HYDROCHLORIDE
     Indication: PANCREATIC CARCINOMA
     Dosage: 1700 MG, 2 CYCLES FOR 1 DAY
     Route: 042
  2. ERLOTINIB [Suspect]
     Active Substance: ERLOTINIB
     Indication: PANCREATIC CARCINOMA
     Dosage: 100 MG, DAILY
     Route: 048
  3. DEXAMETHASONE. [Suspect]
     Active Substance: DEXAMETHASONE
     Dosage: 8 MG DAILY FOR 3 MORE DAYS
     Route: 042
  4. DEXAMETHASONE. [Suspect]
     Active Substance: DEXAMETHASONE
     Dosage: 12 MG, ON THE FIRST DAY
     Route: 042

REACTIONS (1)
  - Aortic thrombosis [Recovered/Resolved]
